FAERS Safety Report 11377741 (Version 2)
Quarter: 2015Q3

REPORT INFORMATION
  Report Type: Spontaneous
  Country: US (occurrence: US)
  Receive Date: 20150811
  Receipt Date: 20150903
  Transmission Date: 20151125
  Serious: No
  Sender: FDA-Public Use
  Company Number: US-ELI_LILLY_AND_COMPANY-US200906006811

PATIENT
  Age: 57 Year
  Sex: Female
  Weight: 70.3 kg

DRUGS (3)
  1. HUMALOG [Suspect]
     Active Substance: INSULIN LISPRO
     Dates: end: 200905
  2. HUMULIN N [Suspect]
     Active Substance: INSULIN HUMAN
  3. EXENATIDE [Concomitant]
     Active Substance: EXENATIDE
     Indication: TYPE 2 DIABETES MELLITUS
     Dates: start: 20090518

REACTIONS (7)
  - Abdominal pain upper [Recovering/Resolving]
  - Nausea [Recovering/Resolving]
  - Nervousness [Recovering/Resolving]
  - Malaise [Recovering/Resolving]
  - Anxiety [Unknown]
  - Blood glucose decreased [Recovered/Resolved]
  - Headache [Recovering/Resolving]

NARRATIVE: CASE EVENT DATE: 20090518
